FAERS Safety Report 8305068-8 (Version None)
Quarter: 2012Q2

REPORT INFORMATION
  Report Type: 
  Country: None (occurrence: None)
  Receive Date: 20120423
  Receipt Date: 20120412
  Transmission Date: 20120825
  Serious: Yes (Hospitalization)
  Sender: FDA-Public Use
  Company Number: US-VERTEX PHARMACEUTICALS INC.-AE-2012-005284

PATIENT
  Sex: Female
  Weight: 61.29 kg

DRUGS (6)
  1. PLAQUENIL [Concomitant]
  2. PEGASYS [Concomitant]
     Indication: HEPATITIS C
     Dates: start: 20120315
  3. RIBAVIRIN [Concomitant]
     Indication: HEPATITIS C
     Dates: start: 20120315
  4. INCIVEK [Suspect]
     Indication: HEPATITIS C
     Route: 048
     Dates: start: 20120315
  5. LYRICA [Concomitant]
  6. PANTOPRAZOLE SODIUM [Concomitant]

REACTIONS (7)
  - FATIGUE [None]
  - HAEMOGLOBIN DECREASED [None]
  - GASTROINTESTINAL INFECTION [None]
  - DYSPNOEA [None]
  - ASTHENIA [None]
  - NAUSEA [None]
  - MUSCULOSKELETAL CHEST PAIN [None]
